FAERS Safety Report 7932381-6 (Version None)
Quarter: 2011Q4

REPORT INFORMATION
  Report Type: 
  Country: None (occurrence: None)
  Receive Date: 20111122
  Receipt Date: 20111115
  Transmission Date: 20120403
  Serious: Yes (Other)
  Sender: FDA-Public Use
  Company Number: GB-BRISTOL-MYERS SQUIBB COMPANY-16230989

PATIENT
  Age: 52 Year
  Sex: Female
  Weight: 77 kg

DRUGS (5)
  1. METFORMIN HCL [Concomitant]
     Dates: start: 20110822
  2. DICLOFENAC SODIUM [Concomitant]
     Dates: start: 20110720, end: 20110817
  3. SAXAGLIPTIN [Suspect]
  4. SIMVASTATIN [Concomitant]
     Dates: start: 20110822
  5. LANTUS [Concomitant]
     Dates: start: 20110908, end: 20111008

REACTIONS (2)
  - TREMOR [None]
  - DIZZINESS [None]
